FAERS Safety Report 6291205-6 (Version None)
Quarter: 2009Q3

REPORT INFORMATION
  Report Type: 
  Country: None (occurrence: None)
  Receive Date: 20090730
  Receipt Date: 20090716
  Transmission Date: 20100115
  Serious: Yes (Life-Threatening, Hospitalization)
  Sender: FDA-Public Use
  Company Number: JP-PFIZER INC-2009221991

PATIENT
  Age: 48 Year

DRUGS (4)
  1. SUNITINIB MALATE [Suspect]
     Indication: GASTROINTESTINAL STROMAL TUMOUR
     Dosage: 37.5 MG, 1X/DAY
     Route: 048
     Dates: start: 20080917, end: 20090104
  2. LOPEMIN [Concomitant]
     Dosage: UNK
     Route: 048
     Dates: start: 20080930, end: 20081222
  3. PAXIL [Concomitant]
     Route: 048
  4. SOLANAX [Concomitant]
     Route: 048

REACTIONS (3)
  - ANAEMIA [None]
  - DEEP VEIN THROMBOSIS [None]
  - RENAL FAILURE [None]
